FAERS Safety Report 5795971-5 (Version None)
Quarter: 2008Q2

REPORT INFORMATION
  Report Type: 
  Country: None (occurrence: None)
  Receive Date: 20080626
  Receipt Date: 20080616
  Transmission Date: 20081010
  Serious: Yes (Hospitalization)
  Sender: FDA-Public Use
  Company Number: 2008SP011902

PATIENT
  Age: 67 Year
  Sex: Male

DRUGS (9)
  1. TEMOZOLOMIDE [Suspect]
     Indication: MALIGNANT MELANOMA
     Dosage: 200 MG; QD; PO
     Route: 048
     Dates: start: 20080521, end: 20080524
  2. ABT-888 (INVESTIGATIONAL DRUG) [Suspect]
     Indication: MALIGNANT MELANOMA
     Dosage: BID; PO
     Route: 048
     Dates: start: 20080522, end: 20080524
  3. AMLODIPINE [Concomitant]
  4. TOLTERODINE TARTRATE [Concomitant]
  5. MULTIVITAMIN [Concomitant]
  6. ACETAMINOPHEN [Concomitant]
  7. TRAVOPROST [Concomitant]
  8. NAPROXEN SODIUM [Concomitant]
  9. ZOLPIDEM TARTRATE [Concomitant]

REACTIONS (11)
  - AORTIC DISORDER [None]
  - CHEST X-RAY ABNORMAL [None]
  - CONSTIPATION [None]
  - ERYTHEMA [None]
  - GASTRIC DISORDER [None]
  - HAEMATEMESIS [None]
  - NAUSEA [None]
  - NO THERAPEUTIC RESPONSE [None]
  - OESOPHAGITIS [None]
  - RETCHING [None]
  - VOMITING [None]
